FAERS Safety Report 5757268-9 (Version None)
Quarter: 2008Q2

REPORT INFORMATION
  Report Type: 
  Country: None (occurrence: None)
  Receive Date: 20080603
  Receipt Date: 20080520
  Transmission Date: 20081010
  Serious: Yes (Other)
  Sender: FDA-Public Use
  Company Number: US-ELI_LILLY_AND_COMPANY-US200805003952

PATIENT
  Sex: Female

DRUGS (4)
  1. FORTEO [Suspect]
     Indication: OSTEOPOROSIS
     Dosage: UNK, UNK
     Dates: start: 20040101, end: 20060101
  2. ASPIRIN [Concomitant]
  3. CALCIUM WITH VITAMIN D [Concomitant]
  4. MAGNESIUM [Concomitant]

REACTIONS (4)
  - ACTIVITIES OF DAILY LIVING IMPAIRED [None]
  - BONE DENSITY DECREASED [None]
  - CEREBROVASCULAR ACCIDENT [None]
  - PELVIC FRACTURE [None]
